FAERS Safety Report 6019845-X (Version None)
Quarter: 2008Q4

REPORT INFORMATION
  Report Type: 
  Country: None (occurrence: None)
  Receive Date: 20081224
  Receipt Date: 20081218
  Transmission Date: 20090506
  Serious: Yes (Other)
  Sender: FDA-Public Use
  Company Number: NL-GENENTECH-274290

PATIENT

DRUGS (2)
  1. BEVACIZUMAB [Suspect]
     Indication: MACULAR DEGENERATION
     Dosage: 1.25 MG, UNK
     Route: 031
  2. ANTICOAGULANT [Concomitant]
     Indication: DRUG USE FOR UNKNOWN INDICATION

REACTIONS (1)
  - TRANSIENT ISCHAEMIC ATTACK [None]
